FAERS Safety Report 9898985 (Version 1)
Quarter: 2014Q1

REPORT INFORMATION
  Report Type: Spontaneous
  Country: FR (occurrence: FR)
  Receive Date: 20140214
  Receipt Date: 20140214
  Transmission Date: 20141002
  Serious: Yes (Hospitalization)
  Sender: FDA-Public Use
  Company Number: FR-GLAXOSMITHKLINE-B0967209A

PATIENT
  Age: 65 Year
  Sex: Male

DRUGS (16)
  1. NIMBEX [Suspect]
     Indication: ANAESTHESIA
     Route: 042
     Dates: start: 20130924, end: 20130924
  2. XARELTO [Suspect]
     Indication: PRODUCT USED FOR UNKNOWN INDICATION
     Dosage: 10MG PER DAY
     Route: 048
     Dates: start: 20130925, end: 20131029
  3. DROLEPTAN [Suspect]
     Indication: PROCEDURAL VOMITING
     Route: 042
     Dates: start: 20130924, end: 20130926
  4. PROFENID [Suspect]
     Indication: PRODUCT USED FOR UNKNOWN INDICATION
     Dosage: 50MG FOUR TIMES PER DAY
     Route: 042
     Dates: start: 20130924, end: 20130926
  5. NEFOPAM [Suspect]
     Indication: POSTOPERATIVE ANALGESIA
     Route: 042
     Dates: start: 20130924, end: 20130926
  6. PARACETAMOL [Suspect]
     Indication: POSTOPERATIVE ANALGESIA
     Dosage: 1G FOUR TIMES PER DAY
     Route: 042
     Dates: start: 20130924, end: 20130926
  7. EUPANTOL [Suspect]
     Indication: PROPHYLAXIS AGAINST GASTROINTESTINAL ULCER
     Dosage: 20MG PER DAY
     Route: 048
     Dates: start: 20130925, end: 20130929
  8. MORPHINE [Suspect]
     Indication: POSTOPERATIVE ANALGESIA
     Route: 042
     Dates: start: 20130924, end: 20130925
  9. DEXAMETHASONE [Suspect]
     Indication: PROCEDURAL VOMITING
     Route: 042
     Dates: start: 20130924, end: 20130924
  10. ONDANSETRON [Suspect]
     Indication: PROCEDURAL VOMITING
     Route: 042
     Dates: start: 20130924, end: 20130924
  11. EXACYL [Suspect]
     Indication: HAEMORRHAGE
     Route: 042
     Dates: start: 20130924, end: 20130924
  12. HYPNOVEL [Suspect]
     Indication: ANAESTHESIA
     Route: 042
     Dates: start: 20130924, end: 20130924
  13. SUFENTA [Suspect]
     Indication: ANAESTHESIA
     Route: 042
     Dates: start: 20130924, end: 20130924
  14. DIPRIVAN [Suspect]
     Indication: ANAESTHESIA
     Route: 042
     Dates: start: 20130924, end: 20130924
  15. KETAMINE [Suspect]
     Indication: ANAESTHESIA
     Route: 042
     Dates: start: 20130924, end: 20130924
  16. TRIATEC [Concomitant]

REACTIONS (5)
  - Mania [Recovered/Resolved]
  - Logorrhoea [Recovered/Resolved]
  - Disinhibition [Recovered/Resolved]
  - Mood altered [Recovered/Resolved]
  - Abnormal behaviour [Recovered/Resolved]
